FAERS Safety Report 19625697 (Version 1)
Quarter: 2021Q3

REPORT INFORMATION
  Report Type: Spontaneous
  Country: DE (occurrence: DE)
  Receive Date: 20210729
  Receipt Date: 20210729
  Transmission Date: 20211014
  Serious: Yes (Other)
  Sender: FDA-Public Use
  Company Number: DE-DRREDDYS-SPO/GER/21/0138090

PATIENT
  Age: 65 Year
  Sex: Male
  Weight: 98 kg

DRUGS (12)
  1. SIMVASTATIN. [Suspect]
     Active Substance: SIMVASTATIN
     Indication: SUPRAVENTRICULAR TACHYCARDIA
  2. SIMVASTATIN. [Suspect]
     Active Substance: SIMVASTATIN
     Indication: HYPERTENSION
  3. METOPROLOL. [Interacting]
     Active Substance: METOPROLOL
     Indication: ATRIAL FIBRILLATION
  4. NEBIVOLOL. [Interacting]
     Active Substance: NEBIVOLOL
     Indication: ATRIAL FIBRILLATION
  5. NEBIVOLOL. [Interacting]
     Active Substance: NEBIVOLOL
     Indication: TACHYARRHYTHMIA
     Dates: start: 2000
  6. METOPROLOL. [Suspect]
     Active Substance: METOPROLOL
     Indication: TACHYARRHYTHMIA
     Dates: start: 2000
  7. SIMVASTATIN. [Suspect]
     Active Substance: SIMVASTATIN
     Indication: TACHYARRHYTHMIA
     Dosage: (BESCHWERDEN BEI ABWEICHUNG)?(COMPLAINTS IN CASE OF DEVIATION)
     Dates: start: 2000
  8. METOPROLOL. [Interacting]
     Active Substance: METOPROLOL
     Indication: HYPERTENSION
  9. NEBIVOLOL. [Interacting]
     Active Substance: NEBIVOLOL
     Indication: HYPERTENSION
  10. SIMVASTATIN. [Suspect]
     Active Substance: SIMVASTATIN
     Indication: ATRIAL FIBRILLATION
  11. METOPROLOL. [Interacting]
     Active Substance: METOPROLOL
     Indication: SUPRAVENTRICULAR TACHYCARDIA
  12. NEBIVOLOL. [Interacting]
     Active Substance: NEBIVOLOL
     Indication: SUPRAVENTRICULAR TACHYCARDIA

REACTIONS (1)
  - Atrial fibrillation [Recovered/Resolved]

NARRATIVE: CASE EVENT DATE: 20200913
